FAERS Safety Report 7442745-5 (Version None)
Quarter: 2011Q2

REPORT INFORMATION
  Report Type: 
  Country: None (occurrence: None)
  Receive Date: 20110428
  Receipt Date: 20110425
  Transmission Date: 20111010
  Serious: Yes (Other)
  Sender: FDA-Public Use
  Company Number: JP-B.I. PHARMACEUTICALS,INC./RIDGEFIELD-2011-BP-11742NB

PATIENT
  Sex: Male

DRUGS (1)
  1. MICARDIS [Suspect]
     Route: 048
     Dates: start: 20100201

REACTIONS (3)
  - SYNCOPE [None]
  - ILIUM FRACTURE [None]
  - FALL [None]
